FAERS Safety Report 17396453 (Version 1)
Quarter: 2020Q1

REPORT INFORMATION
  Report Type: Spontaneous
  Country: US (occurrence: US)
  Receive Date: 20200207
  Receipt Date: 20200207
  Transmission Date: 20200409
  Serious: Yes (Death, Hospitalization)
  Sender: FDA-Public Use
  Company Number: None

PATIENT
  Age: 27 Year
  Sex: Male
  Weight: 72 kg

DRUGS (8)
  1. KLARITY KRATOM: MAENG DA CAPSULES [Suspect]
     Active Substance: HERBALS\MITRAGYNINE
     Indication: SLEEP DISORDER
  2. XANAX [Concomitant]
     Active Substance: ALPRAZOLAM
  3. KLARITY KRATOM: MAENG DA CAPSULES [Suspect]
     Active Substance: HERBALS\MITRAGYNINE
     Indication: ANXIETY
  4. KLARITY KRATOM: MAENG DA CAPSULES [Suspect]
     Active Substance: HERBALS\MITRAGYNINE
     Indication: OBSESSIVE-COMPULSIVE DISORDER
  5. MELATONIN [Concomitant]
     Active Substance: MELATONIN
  6. ALPRAZOLAM. [Suspect]
     Active Substance: ALPRAZOLAM
  7. CYCLOBENZAPRINE. [Suspect]
     Active Substance: CYCLOBENZAPRINE
  8. DOXYLAMINE [Suspect]
     Active Substance: DOXYLAMINE

REACTIONS (4)
  - Accidental overdose [None]
  - Influenza [None]
  - Anxiety [None]
  - Seizure [None]

NARRATIVE: CASE EVENT DATE: 20180726
